FAERS Safety Report 7496922-8 (Version None)
Quarter: 2011Q2

REPORT INFORMATION
  Report Type: 
  Country: None (occurrence: None)
  Receive Date: 20110523
  Receipt Date: 20110519
  Transmission Date: 20111010
  Serious: Yes (Hospitalization)
  Sender: FDA-Public Use
  Company Number: ES-MERCK-1105ESP00067

PATIENT
  Age: 63 Year
  Sex: Female

DRUGS (1)
  1. ZETIA [Suspect]
     Route: 048
     Dates: start: 20100101, end: 20110201

REACTIONS (1)
  - HEPATITIS TOXIC [None]
